FAERS Safety Report 22115047 (Version 1)
Quarter: 2023Q1

REPORT INFORMATION
  Report Type: Spontaneous
  Country: US (occurrence: None)
  Receive Date: 20230318
  Receipt Date: 20230318
  Transmission Date: 20230417
  Serious: Yes (unspecified)
  Sender: FDA-Public Use
  Company Number: None

PATIENT
  Age: 73 Year
  Sex: Female
  Weight: 51.75 kg

DRUGS (1)
  1. CLENPIQ [Suspect]
     Active Substance: ANHYDROUS CITRIC ACID\MAGNESIUM OXIDE\SODIUM PICOSULFATE
     Indication: Colonoscopy
     Dates: start: 20230130, end: 20230201

REACTIONS (7)
  - Oral mucosal exfoliation [None]
  - Throat irritation [None]
  - Stomatitis [None]
  - Dysphagia [None]
  - Eating disorder [None]
  - Oral discomfort [None]
  - Oropharyngeal discomfort [None]

NARRATIVE: CASE EVENT DATE: 20230131
